FAERS Safety Report 5425077-6 (Version None)
Quarter: 2007Q3

REPORT INFORMATION
  Report Type: 
  Country: None (occurrence: None)
  Receive Date: 20070824
  Receipt Date: 20070823
  Transmission Date: 20080115
  Serious: Yes (Hospitalization)
  Sender: FDA-Public Use
  Company Number: CA-SANOFI-SYNTHELABO-A01200708683

PATIENT
  Age: 61 Year
  Sex: Male

DRUGS (7)
  1. SOFLAX [Concomitant]
     Route: 048
  2. ALTACE [Concomitant]
     Indication: HYPERTENSION
     Dosage: UNK
     Route: 048
  3. DEXAMETHASONE 0.5MG TAB [Concomitant]
     Route: 048
  4. ONDANSETRON [Concomitant]
     Route: 048
  5. LEUCOVORIN CALCIUM [Concomitant]
     Indication: COLON CANCER
     Route: 042
     Dates: start: 20070711, end: 20070712
  6. FLUOROURACIL [Concomitant]
     Indication: COLON CANCER
     Route: 040
     Dates: start: 20070711, end: 20070712
  7. ELOXATIN [Suspect]
     Indication: COLON CANCER
     Route: 042
     Dates: start: 20070711, end: 20070711

REACTIONS (4)
  - ARTERIAL THROMBOSIS LIMB [None]
  - PAIN [None]
  - PERIPHERAL ISCHAEMIA [None]
  - PULSE ABSENT [None]
